FAERS Safety Report 8897433 (Version 1)
Quarter: 2012Q4

REPORT INFORMATION
  Report Type: 
  Country: US (occurrence: US)
  Receive Date: 20121108
  Receipt Date: 20121108
  Transmission Date: 20130627
  Serious: No
  Sender: FDA-Public Use
  Company Number: US-AMGEN-USASP2012012082

PATIENT
  Sex: Male
  Weight: 99.77 kg

DRUGS (15)
  1. ENBREL [Suspect]
     Indication: PRODUCT USED FOR UNKNOWN INDICATION
     Dosage: 50 mg, qwk
     Route: 058
  2. CYMBALTA [Concomitant]
     Dosage: 30 mg, UNK
  3. UROXATRAL [Concomitant]
     Dosage: 10 mg, UNK
  4. RAMIPRIL [Concomitant]
     Dosage: 1.25 mg, UNK
  5. METHOTREXATE [Concomitant]
     Dosage: 2.5 mg, UNK
  6. LYRICA [Concomitant]
     Dosage: 100 mg, UNK
  7. FENOFIBRATE [Concomitant]
     Dosage: 67 mg, UNK
  8. FOLIC ACID [Concomitant]
     Dosage: 1 mg, UNK
  9. NEXIUM                             /01479302/ [Concomitant]
     Dosage: 20 mg, UNK
  10. HYDROCHLOROTH [Concomitant]
     Dosage: 12.5 mg, UNK
  11. VITAMIN B12                        /00056201/ [Concomitant]
     Dosage: 1000 mug, UNK
  12. METHYLPRED [Concomitant]
     Dosage: 4 mg, UNK
  13. ALFUZOSIN [Concomitant]
     Dosage: 10 mg, UNK
  14. VITAMIN D /00107901/ [Concomitant]
     Dosage: 2000 IU, UNK
  15. VITAMIN B 6 [Concomitant]
     Dosage: 50 mg, UNK

REACTIONS (1)
  - Contusion [Unknown]
